FAERS Safety Report 7685959-1 (Version None)
Quarter: 2011Q3

REPORT INFORMATION
  Report Type: 
  Country: None (occurrence: None)
  Receive Date: 20110812
  Receipt Date: 20110812
  Transmission Date: 20111222
  Serious: No
  Sender: FDA-Public Use
  Company Number: None

PATIENT
  Sex: Female
  Weight: 59.1 kg

DRUGS (1)
  1. LUNESTA [Suspect]

REACTIONS (4)
  - SLEEP-RELATED EATING DISORDER [None]
  - MENTAL IMPAIRMENT [None]
  - CONFUSIONAL STATE [None]
  - AGITATION [None]
